FAERS Safety Report 4781252-5 (Version None)
Quarter: 2005Q3

REPORT INFORMATION
  Report Type: 
  Country: None (occurrence: None)
  Receive Date: 20050928
  Receipt Date: 20050920
  Transmission Date: 20060218
  Serious: Yes (Death)
  Sender: FDA-Public Use
  Company Number: US-GLAXOSMITHKLINE-A0575054A

PATIENT
  Age: 71 Year
  Sex: Male

DRUGS (4)
  1. ADVAIR DISKUS 100/50 [Suspect]
     Indication: CHRONIC OBSTRUCTIVE PULMONARY DISEASE
     Dosage: 1PUFF TWICE PER DAY
     Route: 055
     Dates: start: 20050401
  2. DUONEB [Concomitant]
  3. LASIX [Concomitant]
  4. CONCURRENT MEDICATIONS [Concomitant]

REACTIONS (8)
  - APHONIA [None]
  - CANDIDIASIS [None]
  - COMA [None]
  - DYSPHONIA [None]
  - LACRIMATION INCREASED [None]
  - PAIN [None]
  - RESPIRATORY FAILURE [None]
  - RHINORRHOEA [None]
